FAERS Safety Report 16753909 (Version 1)
Quarter: 2019Q3

REPORT INFORMATION
  Report Type: Spontaneous
  Country: US (occurrence: US)
  Receive Date: 20190829
  Receipt Date: 20190829
  Transmission Date: 20191005
  Serious: Yes (Other)
  Sender: FDA-Public Use
  Company Number: US-COOPERSURGICAL, INC.-US-2019CPS002629

PATIENT
  Sex: Male

DRUGS (1)
  1. PARAGARD T 380A [Suspect]
     Active Substance: COPPER
     Indication: CONTRACEPTION
     Dosage: UNK
     Route: 015
     Dates: start: 201207, end: 20190309

REACTIONS (4)
  - Congenital ureteric anomaly [Not Recovered/Not Resolved]
  - Foetal exposure during pregnancy [Not Recovered/Not Resolved]
  - Foetal renal imaging abnormal [Not Recovered/Not Resolved]
  - Hydranencephaly [Not Recovered/Not Resolved]

NARRATIVE: CASE EVENT DATE: 201902
